FAERS Safety Report 5158403-6 (Version None)
Quarter: 2006Q4

REPORT INFORMATION
  Report Type: 
  Country: None (occurrence: None)
  Receive Date: 20061128
  Receipt Date: 20061117
  Transmission Date: 20070319
  Serious: Yes (Hospitalization)
  Sender: FDA-Public Use
  Company Number: PHBS2006BR18142

PATIENT
  Sex: Male
  Weight: 95 kg

DRUGS (2)
  1. OMEPRAZOLE [Concomitant]
     Indication: GASTRITIS
     Dosage: 10-20 MG/D
     Route: 048
  2. LEPONEX [Suspect]
     Indication: SCHIZOPHRENIA
     Dosage: 300 MG, BID
     Route: 048

REACTIONS (9)
  - ABDOMINAL PAIN UPPER [None]
  - BILE DUCT OBSTRUCTION [None]
  - BLOOD BILIRUBIN INCREASED [None]
  - CHOLANGITIS [None]
  - CHROMATURIA [None]
  - FAECES DISCOLOURED [None]
  - JAUNDICE [None]
  - PAIN [None]
  - PYREXIA [None]
